FAERS Safety Report 10056309 (Version 1)
Quarter: 2014Q2

REPORT INFORMATION
  Report Type: Spontaneous
  Country: US (occurrence: None)
  Receive Date: 20140401
  Receipt Date: 20140401
  Transmission Date: 20141212
  Serious: Yes (Life-Threatening, Other)
  Sender: FDA-Public Use
  Company Number: 001697840A

PATIENT
  Age: 41 Year
  Sex: Female

DRUGS (6)
  1. PROACTIV+ SKIN EXFOLIATOR [Suspect]
     Indication: ACNE
     Dosage: DERMAL
     Dates: start: 20140210
  2. PROACTIV + PORE TARGETING TREATMENT [Suspect]
     Indication: ACNE
     Dosage: DERMAL
     Dates: start: 20140210
  3. PROACTIV+ COMPLEXION PERFECTING HYDRATOR [Suspect]
     Dosage: DERMAL
     Dates: start: 20140210
  4. EPIPEN [Concomitant]
  5. ALLEGRA [Concomitant]
  6. SINGULAIR [Concomitant]

REACTIONS (3)
  - Urticaria [None]
  - Blister [None]
  - Respiratory disorder [None]
